FAERS Safety Report 5927554-8 (Version None)
Quarter: 2008Q4

REPORT INFORMATION
  Report Type: 
  Country: None (occurrence: None)
  Receive Date: 20081020
  Receipt Date: 20081008
  Transmission Date: 20090506
  Serious: Yes (Hospitalization)
  Sender: FDA-Public Use
  Company Number: 2008BI018849

PATIENT
  Age: 40 Year
  Sex: Female
  Weight: 74.8435 kg

DRUGS (7)
  1. TYSABRI [Suspect]
     Indication: MULTIPLE SCLEROSIS
     Dosage: 300 MG;QM;IV
     Route: 042
     Dates: start: 20080403
  2. CYMBALTA [Concomitant]
  3. ARMOUR THYROID [Concomitant]
  4. AMBIEN [Concomitant]
  5. VITAMIN D [Concomitant]
  6. TESTOSTERONE [Concomitant]
  7. PROGESTERONE [Concomitant]

REACTIONS (9)
  - BLOOD CULTURE POSITIVE [None]
  - CYSTITIS [None]
  - ESCHERICHIA INFECTION [None]
  - MULTIPLE SCLEROSIS RELAPSE [None]
  - NAUSEA [None]
  - PALPITATIONS [None]
  - PYELONEPHRITIS [None]
  - VOMITING [None]
  - WEIGHT DECREASED [None]
